FAERS Safety Report 19792810 (Version 1)
Quarter: 2021Q3

REPORT INFORMATION
  Report Type: Spontaneous
  Country: US (occurrence: US)
  Receive Date: 20210906
  Receipt Date: 20210906
  Transmission Date: 20211014
  Serious: Yes (Hospitalization)
  Sender: FDA-Public Use
  Company Number: US-ROCHE-2902644

PATIENT
  Age: 77 Year
  Sex: Female
  Weight: 61.74 kg

DRUGS (9)
  1. SIMVASTATIN. [Concomitant]
     Active Substance: SIMVASTATIN
     Indication: BLOOD CHOLESTEROL INCREASED
     Route: 048
  2. ASPRIN [Concomitant]
     Active Substance: ASPIRIN
     Route: 048
  3. REFRESH [Concomitant]
     Active Substance: UNSPECIFIED INGREDIENT
     Indication: DRY EYE
  4. L?THYROXINE [Concomitant]
     Active Substance: LEVOTHYROXINE
     Route: 048
  5. CALCIUM [Concomitant]
     Active Substance: CALCIUM
     Route: 048
  6. XANAX [Concomitant]
     Active Substance: ALPRAZOLAM
     Indication: INSOMNIA
     Route: 048
  7. LUCENTIS [Suspect]
     Active Substance: RANIBIZUMAB
     Indication: NEOVASCULAR AGE-RELATED MACULAR DEGENERATION
     Route: 050
     Dates: start: 202106
  8. IRBESARTAN. [Concomitant]
     Active Substance: IRBESARTAN
     Indication: BLOOD PRESSURE MEASUREMENT
     Route: 048
  9. AREDS [Concomitant]
     Active Substance: MINERALS\VITAMINS
     Dosage: TAKE 2 A DAY ONE IN THE MORNING AND ONE AT NIGHT

REACTIONS (8)
  - Haemoglobin decreased [Unknown]
  - Loss of consciousness [Unknown]
  - Urinary incontinence [Unknown]
  - Intraocular pressure increased [Unknown]
  - Blood pressure decreased [Unknown]
  - Asthenia [Unknown]
  - Anaemia [Unknown]
  - Full blood count decreased [Unknown]

NARRATIVE: CASE EVENT DATE: 20210719
